FAERS Safety Report 19880929 (Version 2)
Quarter: 2021Q3

REPORT INFORMATION
  Report Type: Spontaneous
  Country: SE (occurrence: SE)
  Receive Date: 20210924
  Receipt Date: 20210930
  Transmission Date: 20211014
  Serious: Yes (Disabling)
  Sender: FDA-Public Use
  Company Number: SE-AMERICAN REGENT INC-2021002494

PATIENT
  Age: 55 Year
  Sex: Male
  Weight: 70 kg

DRUGS (4)
  1. FERINJECT [Suspect]
     Active Substance: FERRIC CARBOXYMALTOSE
     Indication: ANAEMIA
     Dosage: 50 MG/270 ML EVERY 3 WEEKS (PLANNED THERAPY REGIMEN WAS FOR ONE YEAR)
     Route: 042
     Dates: start: 20200819, end: 20210602
  2. TRANEXAMSYRA EBB [Concomitant]
     Indication: PRODUCT USED FOR UNKNOWN INDICATION
     Dosage: 500 MG, 2 TABLETS 3 TIMES DAILY (1000 MG, 3 IN 1 D)
     Route: 048
     Dates: start: 20210128
  3. VICTOZA [Concomitant]
     Active Substance: LIRAGLUTIDE
     Indication: PRODUCT USED FOR UNKNOWN INDICATION
     Dosage: 6 MG/ML, 1.8 MG ONCE DAILY (1.8 MG, 1 IN 1 D)
     Route: 058
     Dates: start: 20200715
  4. ESOMEPRAZOL ACTAVIS [Concomitant]
     Active Substance: ESOMEPRAZOLE
     Indication: PRODUCT USED FOR UNKNOWN INDICATION
     Dosage: 40 MG 1 TABLET ONCE DAILY (40 MG, 1 IN 1 D)
     Route: 048
     Dates: start: 20200718

REACTIONS (1)
  - Osteonecrosis [Not Recovered/Not Resolved]

NARRATIVE: CASE EVENT DATE: 20210401
